FAERS Safety Report 25765901 (Version 1)
Quarter: 2025Q3

REPORT INFORMATION
  Report Type: Report from Study
  Country: US (occurrence: US)
  Receive Date: 20250905
  Receipt Date: 20250905
  Transmission Date: 20251020
  Serious: Yes (Death)
  Sender: RECORDATI
  Company Number: US-RECORDATI RARE DISEASE INC.-2025006108

PATIENT
  Age: 71 Year
  Sex: Female
  Weight: 62.132 kg

DRUGS (7)
  1. ISTURISA [Suspect]
     Active Substance: OSILODROSTAT PHOSPHATE
     Indication: Ectopic ACTH syndrome
     Dosage: 10 MG, BID (5 MG TABLET)
     Route: 048
     Dates: start: 20250724
  2. ELIQUIS [Concomitant]
     Active Substance: APIXABAN
     Indication: Product used for unknown indication
     Dosage: 5 MG, BID (TABLET)
     Route: 048
     Dates: start: 20240606
  3. LIPITOR [Concomitant]
     Active Substance: ATORVASTATIN CALCIUM
     Indication: Product used for unknown indication
     Dosage: 20 MG,  DAILY (TABLET)
     Route: 048
     Dates: start: 20240606
  4. LOSARTAN POTASSIUM [Concomitant]
     Active Substance: LOSARTAN POTASSIUM
     Indication: Product used for unknown indication
     Dosage: 25 MG, DAILY (TABLET)
     Route: 048
     Dates: start: 20240606
  5. METFORMIN HYDROCHLORIDE [Concomitant]
     Active Substance: METFORMIN HYDROCHLORIDE
     Indication: Product used for unknown indication
     Dosage: 500 MG, BID
     Route: 048
     Dates: start: 20240606
  6. PEPCID [Concomitant]
     Active Substance: FAMOTIDINE
     Indication: Product used for unknown indication
     Route: 048
     Dates: start: 20240606
  7. SPIRONOLACTONE [Concomitant]
     Active Substance: SPIRONOLACTONE
     Indication: Product used for unknown indication
     Dosage: 100 MG, BID (TABLET)
     Route: 048
     Dates: start: 20240606

REACTIONS (1)
  - Death [Fatal]

NARRATIVE: CASE EVENT DATE: 20250818
